FAERS Safety Report 4823649-0 (Version None)
Quarter: 2005Q4

REPORT INFORMATION
  Report Type: 
  Country: None (occurrence: None)
  Receive Date: 20051109
  Receipt Date: 20051031
  Transmission Date: 20060501
  Serious: Yes (Hospitalization)
  Sender: FDA-Public Use
  Company Number: FR-GLAXOSMITHKLINE-B0399025A

PATIENT
  Age: 52 Year
  Sex: Female

DRUGS (9)
  1. AUGMENTIN '125' [Suspect]
     Route: 048
     Dates: start: 20050902, end: 20050902
  2. OFLOCET [Suspect]
     Dosage: 400MG TWICE PER DAY
     Route: 048
     Dates: start: 20050902, end: 20050902
  3. SPASFON [Suspect]
     Route: 048
     Dates: start: 20050902, end: 20050902
  4. DOLIPRANE [Suspect]
     Route: 048
     Dates: start: 20050902, end: 20050902
  5. ULTRA-LEVURE [Concomitant]
     Route: 048
     Dates: start: 20050902, end: 20050902
  6. LEVOTHYROX [Concomitant]
  7. APROVEL [Concomitant]
  8. ELISOR [Concomitant]
  9. PROZAC [Concomitant]

REACTIONS (4)
  - LEUKOCYTOCLASTIC VASCULITIS [None]
  - RASH ERYTHEMATOUS [None]
  - RASH VESICULAR [None]
  - VASCULAR PURPURA [None]
